FAERS Safety Report 24675727 (Version 1)
Quarter: 2024Q4

REPORT INFORMATION
  Report Type: Spontaneous
  Country: CN (occurrence: CN)
  Receive Date: 20241128
  Receipt Date: 20241128
  Transmission Date: 20250115
  Serious: Yes (Other)
  Sender: BAXTER
  Company Number: None

PATIENT
  Age: 34 Year
  Sex: Female
  Weight: 53.2 kg

DRUGS (12)
  1. CYCLOPHOSPHAMIDE [Suspect]
     Active Substance: CYCLOPHOSPHAMIDE
     Indication: Chemotherapy
     Dosage: 800 MG, ONE TIME IN ONE DAY, DILUTED WITH 100 ML OF 0.9% SODIUM CHLORIDE, AT 08:44
     Route: 041
     Dates: start: 20241108, end: 20241108
  2. CYCLOPHOSPHAMIDE [Suspect]
     Active Substance: CYCLOPHOSPHAMIDE
     Indication: Cancer surgery
  3. CYCLOPHOSPHAMIDE [Suspect]
     Active Substance: CYCLOPHOSPHAMIDE
     Indication: Breast cancer female
  4. EPIRUBICIN [Suspect]
     Active Substance: EPIRUBICIN
     Indication: Chemotherapy
     Dosage: 135 MG, ONE TIME IN ONE DAY, DILUTED WITH 100 ML OF 0.9% EPIRUBICIN, AT 08:44
     Route: 041
     Dates: start: 20241108, end: 20241108
  5. EPIRUBICIN [Suspect]
     Active Substance: EPIRUBICIN
     Indication: Breast cancer female
  6. EPIRUBICIN [Suspect]
     Active Substance: EPIRUBICIN
     Indication: Cancer surgery
  7. SODIUM CHLORIDE [Suspect]
     Active Substance: SODIUM CHLORIDE
     Indication: Chemotherapy
     Dosage: (0.9%) 100 ML, ONE TIME IN ONE DAY, USED TO DILUTE 800 MG CYCLOPHOSPHAMIDE, AT 08:44
     Route: 041
     Dates: start: 20241108, end: 20241108
  8. SODIUM CHLORIDE [Suspect]
     Active Substance: SODIUM CHLORIDE
     Indication: Breast cancer female
     Dosage: (0.9%) 100 ML, ONE TIME IN ONE DAY, USED TO DILUTE 135 MG EPIRUBICIN, AT 08:44
     Route: 041
     Dates: start: 20241108, end: 20241108
  9. SODIUM CHLORIDE [Suspect]
     Active Substance: SODIUM CHLORIDE
     Indication: Cancer surgery
     Dosage: (0.9%) 5 ML, ONE TIME IN ONE DAY, USED TO DILUTE 5 MG TROPISETRON
     Route: 065
     Dates: start: 20241108, end: 20241108
  10. SODIUM CHLORIDE [Suspect]
     Active Substance: SODIUM CHLORIDE
     Indication: Medication dilution
  11. TROPISETRON [Suspect]
     Active Substance: TROPISETRON
     Indication: Prophylaxis
     Dosage: INJECTION, 5 MG, ONE TIME IN ONE DAY, DILUTED WITH 5 ML OF 0.9% SODIUM CHLORIDE, AT 07: 14
     Route: 065
     Dates: start: 20241108, end: 20241108
  12. DEXAMETHASONE [Suspect]
     Active Substance: DEXAMETHASONE
     Indication: Prophylaxis
     Dosage: 5 MG INTRAVENOUS INJECTION
     Route: 065

REACTIONS (5)
  - Nausea [Recovering/Resolving]
  - Vomiting [Recovering/Resolving]
  - Hypocalcaemia [Recovering/Resolving]
  - White blood cell count decreased [Recovering/Resolving]
  - Neutrophil count decreased [Recovering/Resolving]

NARRATIVE: CASE EVENT DATE: 20241108
